FAERS Safety Report 8160987-0 (Version None)
Quarter: 2012Q1

REPORT INFORMATION
  Report Type: 
  Country: None (occurrence: None)
  Receive Date: 20120223
  Receipt Date: 20120214
  Transmission Date: 20120608
  Serious: Yes (Hospitalization)
  Sender: FDA-Public Use
  Company Number: US-ASTRAZENECA-2012SE09958

PATIENT
  Age: 64 Year
  Sex: Female
  Weight: 90.3 kg

DRUGS (10)
  1. PREDNISONE [Concomitant]
  2. VALACYCLOVIR [Concomitant]
  3. BUTALBACETAMINE CAFF [Concomitant]
     Dosage: 325/40 MG DAILY
  4. SEROQUEL [Suspect]
     Indication: DEPRESSION
     Route: 048
  5. ASPIRIN [Concomitant]
  6. ALPRAZOLAM [Concomitant]
     Dosage: AS REQUIRED
  7. CELEBREX [Concomitant]
  8. METFORMIN HCL [Concomitant]
  9. LIPITOR [Concomitant]
  10. SEROQUEL [Suspect]
     Indication: BIPOLAR DISORDER
     Route: 048

REACTIONS (11)
  - SINUSITIS [None]
  - INFLUENZA [None]
  - VISUAL IMPAIRMENT [None]
  - NECK PAIN [None]
  - BLOOD PRESSURE FLUCTUATION [None]
  - VIITH NERVE PARALYSIS [None]
  - EAR PAIN [None]
  - OEDEMA MOUTH [None]
  - LOCAL SWELLING [None]
  - AURICULAR SWELLING [None]
  - LIP SWELLING [None]
